FAERS Safety Report 4675993-8 (Version None)
Quarter: 2005Q2

REPORT INFORMATION
  Report Type: 
  Country: None (occurrence: None)
  Receive Date: 20050527
  Receipt Date: 20050315
  Transmission Date: 20051028
  Serious: No
  Sender: FDA-Public Use
  Company Number: US-GLAXOSMITHKLINE-A0549838A

PATIENT
  Age: 43 Year
  Sex: Female

DRUGS (5)
  1. WELLBUTRIN XL [Suspect]
     Indication: ANXIETY
     Dosage: 150MG PER DAY
     Route: 048
     Dates: start: 20050312
  2. LEXAPRO [Concomitant]
  3. TRAZODONE [Concomitant]
  4. ALPRAZOLAM [Concomitant]
  5. VITAMINS [Concomitant]

REACTIONS (5)
  - ANXIETY [None]
  - INSOMNIA [None]
  - PANIC REACTION [None]
  - PSYCHOMOTOR HYPERACTIVITY [None]
  - RESTLESSNESS [None]
